FAERS Safety Report 5855807-0 (Version None)
Quarter: 2008Q3

REPORT INFORMATION
  Report Type: 
  Country: None (occurrence: None)
  Receive Date: 20080825
  Receipt Date: 20070726
  Transmission Date: 20090109
  Serious: No
  Sender: FDA-Public Use
  Company Number: A0663699A

PATIENT
  Age: 37 Year
  Sex: Female

DRUGS (2)
  1. MALARONE [Suspect]
     Indication: MALARIA PROPHYLAXIS
     Dosage: 1TAB SINGLE DOSE
     Route: 048
     Dates: start: 20070514, end: 20070514
  2. YELLOW FEVER VACCINE [Concomitant]

REACTIONS (7)
  - BLISTER [None]
  - HYPERSENSITIVITY [None]
  - PAIN [None]
  - PRURITUS [None]
  - RASH PUSTULAR [None]
  - SWELLING [None]
  - URTICARIA [None]
